FAERS Safety Report 7559087-X (Version None)
Quarter: 2011Q2

REPORT INFORMATION
  Report Type: 
  Country: None (occurrence: None)
  Receive Date: 20110621
  Receipt Date: 20110609
  Transmission Date: 20111010
  Serious: Yes (Hospitalization)
  Sender: FDA-Public Use
  Company Number: US-JNJFOC-20110608155

PATIENT
  Sex: Female
  Weight: 120.2 kg

DRUGS (18)
  1. HYDROCHLOROTHIAZIDE [Concomitant]
     Indication: HYPERTENSION
  2. HALDOL [Concomitant]
     Indication: PSYCHOTIC DISORDER
  3. NALTREXONE HYDROCHLORIDE [Concomitant]
  4. LISINOPRIL [Concomitant]
     Indication: HYPERTENSION
  5. LANTUS [Concomitant]
     Indication: DIABETES MELLITUS
  6. COREG [Concomitant]
     Indication: BLOOD PRESSURE
  7. VISTARIL [Concomitant]
     Indication: WITHDRAWAL SYNDROME
  8. LUVOX [Concomitant]
     Indication: OBSESSIVE-COMPULSIVE DISORDER
  9. NORVASC [Concomitant]
     Indication: CHEST PAIN
  10. TYLENOL-500 [Concomitant]
     Indication: PYREXIA
  11. DEPAKOTE [Concomitant]
     Indication: DRUG THERAPY
  12. RISPERDAL CONSTA [Suspect]
     Indication: PSYCHOTIC DISORDER
     Route: 030
  13. TYLENOL-500 [Concomitant]
     Indication: PAIN
  14. ZOCOR [Concomitant]
     Indication: BLOOD CHOLESTEROL INCREASED
  15. TRAZODONE HCL [Concomitant]
     Indication: SLEEP DISORDER THERAPY
  16. NORVASC [Concomitant]
     Indication: HYPERTENSION
  17. IBUPROFEN [Concomitant]
     Indication: PAIN
  18. METFORMIN HCL [Concomitant]
     Indication: TYPE 2 DIABETES MELLITUS

REACTIONS (2)
  - SELF-INJURIOUS IDEATION [None]
  - VIOLENCE-RELATED SYMPTOM [None]
